FAERS Safety Report 9084016 (Version 4)
Quarter: 2013Q2

REPORT INFORMATION
  Report Type: Report from Study
  Country: DE (occurrence: DE)
  Receive Date: 20130130
  Receipt Date: 20130510
  Transmission Date: 20140414
  Serious: Yes (Hospitalization)
  Sender: FDA-Public Use
  Company Number: DE-PFIZER INC-2012307244

PATIENT
  Age: 66 Year
  Sex: Female
  Weight: 45.5 kg

DRUGS (20)
  1. CRIZOTINIB [Suspect]
     Indication: NON-SMALL CELL LUNG CANCER
     Dosage: 250 MG, 2X/DAY
     Route: 048
     Dates: start: 20110812, end: 20121218
  2. CALCITRIOL [Concomitant]
     Indication: OSTEOPOROSIS
     Dosage: 0.25 UG, 1X/DAY
     Route: 048
  3. BISOPROLOL [Concomitant]
     Indication: HYPERTONIA
     Dosage: 2.5 MG, 1X/DAY
     Route: 048
  4. PANTOPRAZOL [Concomitant]
     Indication: PROPHYLAXIS AGAINST GASTROINTESTINAL ULCER
     Dosage: 40 MG, 1X/DAY
     Route: 048
     Dates: start: 20121115
  5. PANTOPRAZOL [Concomitant]
     Dosage: 40 UG, 2X/DAY (1 IN THE MORNING AND 1 IN THE EVENING)
     Route: 042
     Dates: start: 20121217
  6. TARGIN [Concomitant]
     Indication: PAIN
     Dosage: 5/2.5MG, 2X/DAY, 1-0-2 (1 IN THE MORNING AND 2 IN THE EVENING)
     Route: 048
     Dates: start: 20121115
  7. TOREM [Concomitant]
     Indication: POLYURIA
     Dosage: 20 MG, 1X/DAY
     Route: 048
     Dates: start: 20121115
  8. TOREM [Concomitant]
     Dosage: 10 UG, 1X/DAY IN NOON
     Route: 042
     Dates: start: 20121218
  9. ONDANSETRON [Concomitant]
     Indication: PROPHYLAXIS OF NAUSEA AND VOMITING
     Dosage: 4 MG, 2X/DAY
     Route: 048
     Dates: start: 20121115
  10. ONDANSETRON [Concomitant]
     Dosage: 4 MG, 2X/DAY (1 IN THE MORNING AND 1 IN THE EVENING)
     Route: 042
     Dates: start: 20121218
  11. KCL DRAGEES [Concomitant]
     Indication: HYPERKALAEMIA
     Dosage: 8 MMOL, 3X/DAY
     Route: 048
     Dates: start: 20121205, end: 20121209
  12. MIRTAZAPINE [Concomitant]
     Indication: DEPRESSION
     Dosage: 15 MG, 1X 1/2 IN THE EVENING
     Route: 048
     Dates: start: 20121210, end: 20130114
  13. CITALOPRAM [Concomitant]
     Indication: DEPRESSION
     Dosage: 10 MG, 1X 1/2 IN THE MORNING
     Route: 048
     Dates: start: 20121210
  14. HEPARIN PERFUSOR [Concomitant]
     Indication: VENOUS THROMBOSIS LIMB
     Dosage: 1000 IU, ALWAYS
     Route: 042
     Dates: start: 20121208, end: 20121214
  15. HEPARIN PERFUSOR [Concomitant]
     Indication: THROMBOSIS PROPHYLAXIS
     Dosage: 700-1000 IU, ALWAYS
     Route: 042
     Dates: start: 20121222, end: 20130105
  16. HEPARIN PERFUSOR [Concomitant]
     Indication: ANTICOAGULANT THERAPY
  17. CLINDAMYCIN [Concomitant]
     Indication: CYSTITIS
     Dosage: 600 MG, 3X
     Route: 042
     Dates: start: 20121207, end: 20121210
  18. AMPICILLIN SULBACTAM [Concomitant]
     Indication: CYSTITIS
     Dosage: 3 G, 3XDAY
     Route: 042
     Dates: start: 20121211, end: 20121214
  19. TAZOBAC [Concomitant]
     Indication: INFECTION
     Dosage: 4.5 G, 3XDAY
     Route: 042
     Dates: start: 20121214, end: 20121217
  20. PREDNISOLON [Concomitant]
     Indication: ANTIEMETIC SUPPORTIVE CARE
     Dosage: 10 MG, DAILY
     Route: 048
     Dates: start: 20120108

REACTIONS (2)
  - General physical health deterioration [Recovered/Resolved]
  - Nausea [Recovered/Resolved]
